FAERS Safety Report 8551059-1 (Version None)
Quarter: 2012Q3

REPORT INFORMATION
  Report Type: 
  Country: None (occurrence: None)
  Receive Date: 20120730
  Receipt Date: 20120131
  Transmission Date: 20120928
  Serious: No
  Sender: FDA-Public Use
  Company Number: US-ALLERGAN-1201390US

PATIENT
  Sex: Male

DRUGS (6)
  1. CRESTOR [Concomitant]
     Indication: BLOOD CHOLESTEROL INCREASED
     Dosage: 10 MG, QD
     Route: 048
  2. QUINAPRIL [Concomitant]
     Indication: BLOOD PRESSURE
     Dosage: 40 MG, QD
     Route: 048
  3. HYDROCHLOROTHIAZIDE [Concomitant]
     Indication: BLOOD PRESSURE
     Dosage: 12.5 MG, UNK
     Route: 048
  4. AMLODIPINE [Concomitant]
     Indication: BLOOD PRESSURE
     Dosage: 10 MG, QD
     Route: 048
  5. LUMIGAN [Suspect]
     Indication: GLAUCOMA
     Dosage: 2 GTT, QHS
     Route: 047
     Dates: start: 20120129, end: 20120130
  6. METOPROLOL TARTRATE [Concomitant]
     Indication: BLOOD PRESSURE
     Dosage: 50 MG, QD
     Route: 048

REACTIONS (4)
  - ABNORMAL SENSATION IN EYE [None]
  - FEELING HOT [None]
  - PAIN [None]
  - EYE PAIN [None]
